FAERS Safety Report 15313511 (Version 4)
Quarter: 2019Q4

REPORT INFORMATION
  Report Type: Spontaneous
  Country: BR (occurrence: BR)
  Receive Date: 20180824
  Receipt Date: 20191118
  Transmission Date: 20200122
  Serious: Yes (Other)
  Sender: FDA-Public Use
  Company Number: BR-AMGEN-BRASP2018114992

PATIENT
  Age: 46 Year
  Sex: Female

DRUGS (1)
  1. ENBREL [Suspect]
     Active Substance: ETANERCEPT
     Indication: PRODUCT USED FOR UNKNOWN INDICATION
     Dosage: UNK
     Route: 065
     Dates: start: 201806, end: 201904

REACTIONS (24)
  - Tendonitis [Unknown]
  - Pain [Unknown]
  - Injection site pain [Unknown]
  - Immune system disorder [Unknown]
  - Wrong technique in product usage process [Unknown]
  - Musculoskeletal pain [Unknown]
  - Dysstasia [Unknown]
  - Palatal disorder [Unknown]
  - Arthralgia [Unknown]
  - Pain in extremity [Unknown]
  - Musculoskeletal discomfort [Unknown]
  - Eye irritation [Unknown]
  - Onychalgia [Unknown]
  - Pharyngeal inflammation [Unknown]
  - Abdominal discomfort [Unknown]
  - Gingival discolouration [Unknown]
  - Intervertebral disc protrusion [Unknown]
  - Ankylosing spondylitis [Unknown]
  - Joint noise [Unknown]
  - Pelvic pain [Unknown]
  - Renal colic [Unknown]
  - Insomnia [Unknown]
  - Drug ineffective [Unknown]
  - Retching [Unknown]
